FAERS Safety Report 5877393-1 (Version None)
Quarter: 2008Q3

REPORT INFORMATION
  Report Type: 
  Country: None (occurrence: None)
  Receive Date: 20080909
  Receipt Date: 20080828
  Transmission Date: 20090109
  Serious: Yes (Hospitalization)
  Sender: FDA-Public Use
  Company Number: WAES 0808USA01283

PATIENT
  Age: 65 Year
  Sex: Male

DRUGS (19)
  1. CAP VORINOSTAT UNK [Suspect]
     Indication: ACUTE MYELOID LEUKAEMIA
     Dosage: 400 MG/DAILY/PO
     Route: 048
     Dates: start: 20080710
  2. DECITABINE UNK [Suspect]
     Indication: ACUTE MYELOID LEUKAEMIA
     Dosage: DAILY/IV
     Route: 042
     Dates: start: 20080710, end: 20080714
  3. ALLEGRA [Concomitant]
  4. ANUSOL SUPPOSITORIES/OINTMENT [Concomitant]
  5. COLACE [Concomitant]
  6. MAALOX [Concomitant]
  7. PROTONIX [Concomitant]
  8. SENOKOT [Concomitant]
  9. ULTRAM [Concomitant]
  10. ZOFRAN [Concomitant]
  11. ACETAMINOPHEN [Concomitant]
  12. ALLOPURINOL [Concomitant]
  13. DEXTROSE [Concomitant]
  14. DILTIAZEM HYDROCHLORIDE [Concomitant]
  15. DIPHENHYDRAMINE HYDROCHLORIDE [Concomitant]
  16. FOLIC ACID [Concomitant]
  17. METOPROLOL TARTRATE [Concomitant]
  18. PSEUDOEPHEDRINE HCL [Concomitant]
  19. SODIUM CHLORIDE 0.9% [Concomitant]

REACTIONS (17)
  - AGITATION [None]
  - BLOOD CULTURE POSITIVE [None]
  - CHEST X-RAY ABNORMAL [None]
  - CONFUSIONAL STATE [None]
  - CULTURE POSITIVE [None]
  - ESCHERICHIA BACTERAEMIA [None]
  - HEPATOSPLENOMEGALY [None]
  - KLEBSIELLA INFECTION [None]
  - OPPORTUNISTIC INFECTION [None]
  - PNEUMONIA [None]
  - PROCTALGIA [None]
  - PSEUDOMONAL BACTERAEMIA [None]
  - RASH [None]
  - RESPIRATORY DISTRESS [None]
  - RESPIRATORY FAILURE [None]
  - STAPHYLOCOCCAL INFECTION [None]
  - URINARY RETENTION [None]
